FAERS Safety Report 8034111-9 (Version None)
Quarter: 2012Q1

REPORT INFORMATION
  Report Type: 
  Country: None (occurrence: None)
  Receive Date: 20120110
  Receipt Date: 20120105
  Transmission Date: 20120608
  Serious: Yes (Hospitalization, Other)
  Sender: FDA-Public Use
  Company Number: US-ABBOTT-11P-163-0705093-00

PATIENT
  Sex: Female

DRUGS (22)
  1. METOPROLOL SUCCINATE [Concomitant]
     Indication: HYPERTENSION
  2. ELAVIL [Concomitant]
     Indication: PRODUCT USED FOR UNKNOWN INDICATION
  3. PAXIL [Concomitant]
     Indication: DEPRESSION
  4. SIMVASTATIN [Concomitant]
     Indication: BLOOD CHOLESTEROL INCREASED
  5. ZOFRAN [Concomitant]
     Indication: PRODUCT USED FOR UNKNOWN INDICATION
  6. VITAMIN B-12 [Concomitant]
     Indication: PRODUCT USED FOR UNKNOWN INDICATION
  7. ZOCOR [Concomitant]
     Indication: PRODUCT USED FOR UNKNOWN INDICATION
  8. COLACE [Concomitant]
     Indication: PRODUCT USED FOR UNKNOWN INDICATION
  9. MULTI-VITAMIN [Concomitant]
     Indication: PRODUCT USED FOR UNKNOWN INDICATION
  10. AMARYL [Concomitant]
     Indication: DIABETES MELLITUS
  11. METFORMIN HCL [Concomitant]
     Indication: DIABETES MELLITUS
  12. LAMICTAL [Concomitant]
     Indication: PRODUCT USED FOR UNKNOWN INDICATION
  13. HUMIRA [Suspect]
     Indication: CROHN'S DISEASE
     Route: 058
     Dates: start: 20101012, end: 20110121
  14. PENTASA [Concomitant]
     Indication: CROHN'S DISEASE
  15. HUMIRA [Suspect]
     Route: 058
     Dates: start: 20110101, end: 20111101
  16. PRIMAL DEFENSE PROBIOTIC [Concomitant]
     Indication: PRODUCT USED FOR UNKNOWN INDICATION
  17. LORAZEPAM [Concomitant]
     Indication: PRODUCT USED FOR UNKNOWN INDICATION
  18. HUMIRA [Suspect]
     Route: 058
     Dates: start: 20111101
  19. HYDROCODONE BITARTRATE [Concomitant]
     Indication: PRODUCT USED FOR UNKNOWN INDICATION
  20. ACIPHEX [Concomitant]
     Indication: GASTROOESOPHAGEAL REFLUX DISEASE
  21. IRON [Concomitant]
     Indication: PRODUCT USED FOR UNKNOWN INDICATION
  22. ABILIFY [Concomitant]
     Indication: DEPRESSION

REACTIONS (14)
  - CANDIDIASIS [None]
  - BLOOD GLUCOSE INCREASED [None]
  - NEPHROLITHIASIS [None]
  - INSOMNIA [None]
  - ABDOMINAL PAIN UPPER [None]
  - UPPER RESPIRATORY TRACT INFECTION [None]
  - HAEMOGLOBIN DECREASED [None]
  - CROHN'S DISEASE [None]
  - FLANK PAIN [None]
  - DYSURIA [None]
  - URINARY TRACT INFECTION [None]
  - FUNGAL INFECTION [None]
  - INJECTION SITE PAIN [None]
  - DRUG EFFECT DECREASED [None]
